FAERS Safety Report 12919504 (Version 1)
Quarter: 2016Q4

REPORT INFORMATION
  Report Type: Spontaneous
  Country: US (occurrence: US)
  Receive Date: 20161108
  Receipt Date: 20161108
  Transmission Date: 20170207
  Serious: No
  Sender: FDA-Public Use
  Company Number: US-009507513-1610USA011729

PATIENT
  Sex: Female

DRUGS (1)
  1. ZETIA [Suspect]
     Active Substance: EZETIMIBE
     Route: 048

REACTIONS (3)
  - Hepatic steatosis [Unknown]
  - Cholelithiasis [Unknown]
  - Gastric disorder [Unknown]

NARRATIVE: CASE EVENT DATE: 2015
